FAERS Safety Report 12194357 (Version 1)
Quarter: 2016Q1

REPORT INFORMATION
  Report Type: Spontaneous
  Country: US (occurrence: None)
  Receive Date: 20160318
  Receipt Date: 20160318
  Transmission Date: 20160526
  Serious: No
  Sender: FDA-Public Use
  Company Number: None

PATIENT
  Age: 48 Year
  Sex: Female
  Weight: 74.84 kg

DRUGS (8)
  1. IRON [Concomitant]
     Active Substance: IRON
  2. CIPROFLOXACIN 500 [Suspect]
     Active Substance: CIPROFLOXACIN
     Indication: URINARY TRACT INFECTION
     Route: 048
     Dates: start: 20160226, end: 20160306
  3. CALCIUM [Concomitant]
     Active Substance: CALCIUM
  4. VITAMIN B12 [Concomitant]
     Active Substance: CYANOCOBALAMIN
  5. MAGNESIUM [Concomitant]
     Active Substance: MAGNESIUM
  6. D [Concomitant]
  7. ZYRTEC [Concomitant]
     Active Substance: CETIRIZINE HYDROCHLORIDE
  8. ZINC [Concomitant]
     Active Substance: ZINC\ZINC CHLORIDE

REACTIONS (3)
  - Musculoskeletal stiffness [None]
  - Pain [None]
  - Tendon disorder [None]

NARRATIVE: CASE EVENT DATE: 20160228
